FAERS Safety Report 20905946 (Version 2)
Quarter: 2022Q4

REPORT INFORMATION
  Report Type: Spontaneous
  Country: US (occurrence: US)
  Receive Date: 20220602
  Receipt Date: 20221110
  Transmission Date: 20230113
  Serious: Yes (Hospitalization, Other)
  Sender: FDA-Public Use
  Company Number: US-BRISTOL-MYERS SQUIBB COMPANY-2022-046433

PATIENT

DRUGS (1)
  1. OPDUALAG [Suspect]
     Active Substance: NIVOLUMAB\RELATLIMAB-RMBW
     Indication: Product used for unknown indication
     Route: 065

REACTIONS (7)
  - Mental status changes [Unknown]
  - Brain empyema [Unknown]
  - Brain abscess [Unknown]
  - Subdural haematoma [Unknown]
  - Brain oedema [Unknown]
  - Central nervous system lesion [Unknown]
  - Headache [Unknown]
